FAERS Safety Report 24804226 (Version 1)
Quarter: 2025Q1

REPORT INFORMATION
  Report Type: Spontaneous
  Country: US (occurrence: US)
  Receive Date: 20250103
  Receipt Date: 20250103
  Transmission Date: 20250409
  Serious: Yes (Hospitalization, Other)
  Sender: OXFORD PHARMACEUTICALS, LLC
  Company Number: US-Oxford Pharmaceuticals, LLC-2168320

PATIENT
  Sex: Male

DRUGS (2)
  1. AMLODIPINE BESYLATE [Suspect]
     Active Substance: AMLODIPINE BESYLATE
     Indication: Product used for unknown indication
  2. LISINOPRIL [Suspect]
     Active Substance: LISINOPRIL

REACTIONS (3)
  - Shock [Unknown]
  - Toxicity to various agents [Unknown]
  - Overdose [Unknown]
